FAERS Safety Report 10606901 (Version 1)
Quarter: 2014Q4

REPORT INFORMATION
  Report Type: Spontaneous
  Country: PL (occurrence: PL)
  Receive Date: 20141125
  Receipt Date: 20141125
  Transmission Date: 20150529
  Serious: Yes (Other)
  Sender: FDA-Public Use
  Company Number: PHHY2014PL148821

PATIENT
  Age: 99 Year
  Sex: Female

DRUGS (16)
  1. BISOCARD [Suspect]
     Active Substance: BISOPROLOL
     Indication: PRODUCT USED FOR UNKNOWN INDICATION
     Route: 065
  2. KALIUM [Concomitant]
     Active Substance: POTASSIUM CHLORIDE
     Route: 065
  3. LACTULOSE. [Suspect]
     Active Substance: LACTULOSE
     Indication: PRODUCT USED FOR UNKNOWN INDICATION
     Route: 065
  4. HYGROTON [Suspect]
     Active Substance: CHLORTHALIDONE
     Indication: PRODUCT USED FOR UNKNOWN INDICATION
     Route: 065
     Dates: start: 20131028, end: 20131101
  5. VAXIGRIP [Suspect]
     Active Substance: INFLUENZA VIRUS VACCINE
     Indication: PRODUCT USED FOR UNKNOWN INDICATION
     Route: 065
     Dates: start: 20131010
  6. TRIMESAN [Suspect]
     Active Substance: TRIMETHOPRIM
     Indication: PRODUCT USED FOR UNKNOWN INDICATION
     Route: 065
  7. HYDROXYZINE HYDROCHLORIDE. [Suspect]
     Active Substance: HYDROXYZINE HYDROCHLORIDE
     Route: 065
  8. VITAMIN C [Concomitant]
     Active Substance: ASCORBIC ACID
     Route: 065
  9. UROTRIM [Suspect]
     Active Substance: TRIMETHOPRIM
     Indication: PRODUCT USED FOR UNKNOWN INDICATION
     Route: 065
     Dates: start: 20131105, end: 20131117
  10. FUROSEMID ^DAK^ [Concomitant]
     Route: 065
  11. FERRUM LEK (IRON DEXTRAN) [Suspect]
     Active Substance: IRON DEXTRAN
     Indication: PRODUCT USED FOR UNKNOWN INDICATION
     Route: 065
     Dates: start: 20131031, end: 20131111
  12. KETREL [Suspect]
     Active Substance: TRETINOIN
     Indication: PRODUCT USED FOR UNKNOWN INDICATION
     Route: 065
     Dates: start: 20131119, end: 20131120
  13. ENARENAL [Suspect]
     Active Substance: ENALAPRIL
     Indication: PRODUCT USED FOR UNKNOWN INDICATION
     Route: 065
  14. DEXAVEN [Suspect]
     Active Substance: DEXAMETHASONE
     Indication: PRODUCT USED FOR UNKNOWN INDICATION
     Route: 065
     Dates: start: 20131107, end: 20131110
  15. FLEGAMIN//BROMHEXINE [Suspect]
     Active Substance: BROMHEXINE
     Indication: PRODUCT USED FOR UNKNOWN INDICATION
     Route: 065
     Dates: start: 20131016
  16. MIRTAZAPINA [Suspect]
     Active Substance: MIRTAZAPINE
     Indication: PRODUCT USED FOR UNKNOWN INDICATION
     Route: 065
     Dates: start: 20131113, end: 20131126

REACTIONS (26)
  - Nausea [Unknown]
  - Rash [Unknown]
  - Cachexia [Unknown]
  - Asthenia [Unknown]
  - Dysphagia [Unknown]
  - Limb injury [None]
  - Contusion [None]
  - Tongue discolouration [None]
  - Impaired healing [Unknown]
  - Gastritis [Unknown]
  - Dyspnoea [Unknown]
  - Dysarthria [None]
  - Infection susceptibility increased [None]
  - Hyperhidrosis [Unknown]
  - Blood disorder [Unknown]
  - Immune system disorder [Unknown]
  - Somnolence [Unknown]
  - Rash [None]
  - Erythema [Unknown]
  - Productive cough [Unknown]
  - Pyrexia [Unknown]
  - Speech disorder [Unknown]
  - Altered state of consciousness [Unknown]
  - Decubitus ulcer [Unknown]
  - Petechiae [Unknown]
  - Decreased appetite [Unknown]
